APPROVED DRUG PRODUCT: EMTRICITABINE AND  TENOFOVIR DISOPROXIL FUMARATE
Active Ingredient: EMTRICITABINE; TENOFOVIR DISOPROXIL FUMARATE
Strength: 200MG;300MG
Dosage Form/Route: TABLET;ORAL
Application: A201806 | Product #001 | TE Code: AB
Applicant: HETERO LABS LTD UNIT III
Approved: Oct 7, 2021 | RLD: No | RS: No | Type: RX